FAERS Safety Report 6001403-4 (Version None)
Quarter: 2008Q4

REPORT INFORMATION
  Report Type: 
  Country: None (occurrence: None)
  Receive Date: 20081215
  Receipt Date: 20081204
  Transmission Date: 20090506
  Serious: Yes (Other)
  Sender: FDA-Public Use
  Company Number: BR-ELI_LILLY_AND_COMPANY-BR200811002749

PATIENT
  Age: 37 Year
  Sex: Male

DRUGS (3)
  1. CYMBALTA [Suspect]
     Indication: DEPRESSION
     Dosage: 30 MG, 2/D
     Route: 065
     Dates: start: 20071107
  2. CYMBALTA [Suspect]
     Dosage: 120 MG, DAILY (1/D)
     Route: 065
     Dates: start: 20071127, end: 20081001
  3. FINASTERIDE [Concomitant]

REACTIONS (2)
  - ASCITES [None]
  - HEPATITIS B [None]
